FAERS Safety Report 17025573 (Version 2)
Quarter: 2019Q4

REPORT INFORMATION
  Report Type: Report from Study
  Country: AU (occurrence: AU)
  Receive Date: 20191113
  Receipt Date: 20191119
  Transmission Date: 20200122
  Serious: Yes (Hospitalization, Other)
  Sender: FDA-Public Use
  Company Number: AU-SA-2016SA159627

PATIENT
  Age: 21 Year
  Sex: Female
  Weight: 62 kg

DRUGS (11)
  1. AGALSIDASE BETA [Suspect]
     Active Substance: AGALSIDASE BETA
     Dosage: 70 MG FORTNIGHLTLY; 70 MG IN 250 ML NACL, 60ML/HR FOR 30 MINS, 100 ML/HR FOR 30 MINS, THEN 140 M/HR
     Route: 041
     Dates: start: 20140401
  2. AGALSIDASE BETA [Suspect]
     Active Substance: AGALSIDASE BETA
     Dosage: 75 MG,QOW
     Route: 041
     Dates: start: 20170705, end: 20170811
  3. AGALSIDASE BETA [Suspect]
     Active Substance: AGALSIDASE BETA
     Dosage: 1.1MG/KG IN 250 ML OVER 2.5 HOURS
     Route: 041
  4. AGALSIDASE BETA [Suspect]
     Active Substance: AGALSIDASE BETA
     Indication: FABRY^S DISEASE
     Dosage: 75 MG,QOW
     Route: 041
     Dates: start: 20140401, end: 20160823
  5. AGALSIDASE BETA [Suspect]
     Active Substance: AGALSIDASE BETA
     Dosage: 75 MG,QOW
     Route: 041
     Dates: start: 20160615, end: 20170609
  6. AGALSIDASE BETA [Suspect]
     Active Substance: AGALSIDASE BETA
     Dosage: 70 MG IN 250 ML NORMAL SALINE FORTNIGHTLY (, 60 ML/HR, 30 MIN, 90 ML/HR, 30 MIN,120 ML, 30 MOIN
     Route: 041
  7. AGALSIDASE BETA [Suspect]
     Active Substance: AGALSIDASE BETA
     Dosage: 60 MG, QOW
     Route: 042
     Dates: start: 20191031, end: 20191031
  8. CLARATYNE [Concomitant]
     Active Substance: LORATADINE
     Indication: HYPERSENSITIVITY
  9. AGALSIDASE BETA [Suspect]
     Active Substance: AGALSIDASE BETA
     Dosage: 1 MG/KG, QOW; 250 ML/H, 60 ML/HR 90ML/HR, 120 ML/HR, 140ML/HR
     Route: 041
  10. AGALSIDASE BETA [Suspect]
     Active Substance: AGALSIDASE BETA
     Dosage: .98 MG/KG,QOW
     Route: 041
  11. CLARATYNE [Concomitant]
     Active Substance: LORATADINE
     Indication: PREMEDICATION
     Dosage: 10 MG,UNK
     Route: 048
     Dates: start: 20160321

REACTIONS (30)
  - Bradycardia [Not Recovered/Not Resolved]
  - Vertigo [Not Recovered/Not Resolved]
  - Insomnia [Unknown]
  - Headache [Not Recovered/Not Resolved]
  - Nausea [Recovered/Resolved]
  - Product use issue [Unknown]
  - Device malfunction [Unknown]
  - Hydrocephalus [Not Recovered/Not Resolved]
  - Headache [Recovering/Resolving]
  - Aqueductal stenosis [Unknown]
  - Constipation [Not Recovered/Not Resolved]
  - Amnesia [Not Recovered/Not Resolved]
  - Lethargy [Recovered/Resolved]
  - Malaise [Unknown]
  - Paraesthesia [Recovered/Resolved]
  - Abdominal pain [Not Recovered/Not Resolved]
  - Dizziness [Not Recovered/Not Resolved]
  - Vertigo [Not Recovered/Not Resolved]
  - Rhinorrhoea [Not Recovered/Not Resolved]
  - Arthralgia [Recovered/Resolved]
  - Memory impairment [Not Recovered/Not Resolved]
  - Vision blurred [Recovered/Resolved]
  - Headache [Not Recovered/Not Resolved]
  - Abdominal pain [Recovering/Resolving]
  - Blood pressure diastolic decreased [Recovered/Resolved]
  - Pyrexia [Not Recovered/Not Resolved]
  - Abdominal pain [Not Recovered/Not Resolved]
  - Vomiting [Recovered/Resolved]
  - Pain [Unknown]
  - Back pain [Not Recovered/Not Resolved]

NARRATIVE: CASE EVENT DATE: 20161024
